FAERS Safety Report 4293794-X (Version None)
Quarter: 2004Q1

REPORT INFORMATION
  Report Type: 
  Country: None (occurrence: None)
  Receive Date: 20040212
  Receipt Date: 20040203
  Transmission Date: 20041129
  Serious: Yes (Hospitalization)
  Sender: FDA-Public Use
  Company Number: WAES 0402FRA00007

PATIENT
  Age: 81 Year
  Sex: Female

DRUGS (6)
  1. FERROUS SULFATE [Concomitant]
     Route: 048
  2. LEVOTHYROXINE SODIUM [Concomitant]
     Indication: HYPOTHYROIDISM
     Route: 048
  3. NICORANDIL [Concomitant]
     Indication: CORONARY ARTERY INSUFFICIENCY
     Route: 048
  4. VIOXX [Suspect]
     Indication: ARTHRALGIA
     Route: 048
     Dates: end: 20031127
  5. SPIRONOLACTONE [Concomitant]
     Indication: HYPERTENSION
     Route: 048
     Dates: end: 20031208
  6. SPIRONOLACTONE [Concomitant]
     Indication: CARDIAC FAILURE
     Route: 048
     Dates: end: 20031208

REACTIONS (3)
  - DEHYDRATION [None]
  - HYPERKALAEMIA [None]
  - RENAL FAILURE ACUTE [None]
